FAERS Safety Report 10026709 (Version 1)
Quarter: 2014Q1

REPORT INFORMATION
  Report Type: Spontaneous
  Country: SE (occurrence: SE)
  Receive Date: 20140321
  Receipt Date: 20140321
  Transmission Date: 20141002
  Serious: Yes (Other)
  Sender: FDA-Public Use
  Company Number: SE-BRISTOL-MYERS SQUIBB COMPANY-20516373

PATIENT
  Sex: 0

DRUGS (4)
  1. GLUCOPHAGE TABS [Suspect]
     Dosage: FILM-COATED TABLET
  2. KAVEPENIN [Suspect]
     Dosage: FILM COATED TABLETS
  3. CLINDAMYCIN [Suspect]
  4. EUSAPRIM FORTE [Suspect]
     Dosage: TABLET

REACTIONS (1)
  - Angioedema [Recovered/Resolved]
